FAERS Safety Report 5219549-7 (Version None)
Quarter: 2007Q1

REPORT INFORMATION
  Report Type: 
  Country: None (occurrence: None)
  Receive Date: 20070124
  Receipt Date: 20070124
  Transmission Date: 20070707
  Serious: Yes (Other)
  Sender: FDA-Public Use
  Company Number: None

PATIENT
  Age: 64 Year
  Sex: Male
  Weight: 109.7705 kg

DRUGS (9)
  1. SPIRONOLACTONE [Suspect]
     Indication: HYPERTENSION
     Dosage: 12.5 MG QD
     Dates: start: 20050501, end: 20060601
  2. ALLOPURINOL SODIUM [Concomitant]
  3. ATENOLOL AND CHLORTHALIDONE [Concomitant]
  4. FELODIPINE [Concomitant]
  5. FLUNISOLIDE [Concomitant]
  6. HYDRALAZINE HCL [Concomitant]
  7. LISINOPRIL [Concomitant]
  8. OMEPRAZOLE [Concomitant]
  9. SIMVASTATIN [Concomitant]

REACTIONS (1)
  - GYNAECOMASTIA [None]
